FAERS Safety Report 5029913-7 (Version None)
Quarter: 2006Q2

REPORT INFORMATION
  Report Type: 
  Country: None (occurrence: None)
  Receive Date: 20060620
  Receipt Date: 20060605
  Transmission Date: 20061013
  Serious: Yes (Hospitalization)
  Sender: FDA-Public Use
  Company Number: US-GLAXOSMITHKLINE-A0607916A

PATIENT
  Age: 85 Year
  Sex: Male

DRUGS (4)
  1. COREG [Suspect]
     Indication: CARDIAC FAILURE CONGESTIVE
     Dosage: 3.125MG SIX TIMES PER DAY
     Route: 048
     Dates: start: 20060504, end: 20060527
  2. ZAROXOLYN [Concomitant]
  3. LANOXIN [Concomitant]
  4. LASIX [Concomitant]

REACTIONS (6)
  - BLOOD CREATININE INCREASED [None]
  - BLOOD PRESSURE IMMEASURABLE [None]
  - LOSS OF CONSCIOUSNESS [None]
  - OVERDOSE [None]
  - RENAL FAILURE [None]
  - SYNCOPE [None]
